FAERS Safety Report 11543195 (Version 1)
Quarter: 2015Q3

REPORT INFORMATION
  Report Type: Spontaneous
  Country: US (occurrence: US)
  Receive Date: 20150903
  Receipt Date: 20150903
  Transmission Date: 20151125
  Serious: No
  Sender: FDA-Public Use
  Company Number: US-ELI_LILLY_AND_COMPANY-US201206006397

PATIENT

DRUGS (8)
  1. PRENATAL VITAMINS                  /01549301/ [Concomitant]
     Active Substance: VITAMINS
     Route: 064
  2. ASPIRIN. [Concomitant]
     Active Substance: ASPIRIN
     Route: 064
  3. ASPIRIN. [Concomitant]
     Active Substance: ASPIRIN
     Route: 064
  4. PRENATAL VITAMINS                  /01549301/ [Concomitant]
     Active Substance: VITAMINS
     Route: 064
  5. LANTUS [Concomitant]
     Active Substance: INSULIN GLARGINE
     Route: 064
  6. HUMALOG [Suspect]
     Active Substance: INSULIN LISPRO
     Dosage: UNK
     Route: 064
  7. LANTUS [Concomitant]
     Active Substance: INSULIN GLARGINE
     Route: 064
  8. HUMALOG [Suspect]
     Active Substance: INSULIN LISPRO
     Dosage: UNK
     Route: 064

REACTIONS (2)
  - Foetal exposure during pregnancy [Recovered/Resolved]
  - Amniotic fluid volume decreased [Recovered/Resolved]
